FAERS Safety Report 9009708 (Version 1)
Quarter: 2013Q1

REPORT INFORMATION
  Report Type: Spontaneous
  Country: IT (occurrence: IT)
  Receive Date: 20130110
  Receipt Date: 20130110
  Transmission Date: 20140127
  Serious: Yes (Other)
  Sender: FDA-Public Use
  Company Number: IT-PFIZER INC-2013007531

PATIENT
  Age: 53 Year
  Sex: Female

DRUGS (1)
  1. SUNITINIB MALATE [Suspect]
     Indication: CHONDROSARCOMA METASTATIC
     Dosage: 37.5 MG/DAY
     Dates: start: 201106

REACTIONS (1)
  - Abscess [Recovered/Resolved]
